FAERS Safety Report 4494266-X (Version None)
Quarter: 2004Q4

REPORT INFORMATION
  Report Type: 
  Country: None (occurrence: None)
  Receive Date: 20041104
  Receipt Date: 20041104
  Transmission Date: 20050328
  Serious: Yes (Other)
  Sender: FDA-Public Use
  Company Number: None

PATIENT
  Age: 64 Year
  Sex: Male
  Weight: 78.0187 kg

DRUGS (1)
  1. FLEXERIL [Suspect]
     Indication: MYALGIA
     Dosage: ONE USE LEGS TOPICAL
     Route: 061
     Dates: start: 20041102, end: 20041102

REACTIONS (5)
  - EMOTIONAL DISTRESS [None]
  - FEELING HOT [None]
  - NAUSEA [None]
  - PAROSMIA [None]
  - RESPIRATORY DISORDER [None]
